FAERS Safety Report 24218088 (Version 2)
Quarter: 2024Q3

REPORT INFORMATION
  Report Type: Spontaneous
  Country: GB (occurrence: GB)
  Receive Date: 20240816
  Receipt Date: 20240830
  Transmission Date: 20241016
  Serious: Yes (Death)
  Sender: KARYOPHARM THERAPEUTICS
  Company Number: GB-KARYOPHARM-2024KPT001441

PATIENT

DRUGS (3)
  1. SELINEXOR [Suspect]
     Active Substance: SELINEXOR
     Indication: Product used for unknown indication
     Dosage: UNK
  2. SELINEXOR [Suspect]
     Active Substance: SELINEXOR
     Dosage: UNK
  3. DEXAMETHASONE [Concomitant]
     Active Substance: DEXAMETHASONE
     Indication: Product used for unknown indication
     Dosage: UNK

REACTIONS (2)
  - Death [Fatal]
  - Plasma cell myeloma [Unknown]

NARRATIVE: CASE EVENT DATE: 20240801
